FAERS Safety Report 8012946-6 (Version None)
Quarter: 2011Q4

REPORT INFORMATION
  Report Type: 
  Country: None (occurrence: None)
  Receive Date: 20111229
  Receipt Date: 20111220
  Transmission Date: 20120403
  Serious: Yes (Other)
  Sender: FDA-Public Use
  Company Number: US-JNJFOC-20111208905

PATIENT
  Sex: Male
  Weight: 86.18 kg

DRUGS (3)
  1. RISPERDAL CONSTA [Suspect]
     Route: 030
  2. RISPERDAL CONSTA [Suspect]
     Indication: SCHIZOPHRENIA
     Route: 030
     Dates: end: 20090101
  3. RISPERDAL CONSTA [Suspect]
     Route: 030
     Dates: start: 20050101

REACTIONS (7)
  - METAL POISONING [None]
  - PSYCHOTIC DISORDER [None]
  - MEMORY IMPAIRMENT [None]
  - ELECTROCONVULSIVE THERAPY [None]
  - NEUROLOGICAL SYMPTOM [None]
  - BRUXISM [None]
  - INSOMNIA [None]
